FAERS Safety Report 6322144-X (Version None)
Quarter: 2009Q3

REPORT INFORMATION
  Report Type: 
  Country: None (occurrence: None)
  Receive Date: 20090814
  Receipt Date: 20090716
  Transmission Date: 20100115
  Serious: Yes (Hospitalization, Other)
  Sender: FDA-Public Use
  Company Number: 83952

PATIENT
  Age: 58 Year
  Sex: Male
  Weight: 85.7298 kg

DRUGS (1)
  1. ETOPOSIDE [Suspect]
     Indication: ACUTE MYELOID LEUKAEMIA
     Dosage: 160MG IV DAILY
     Route: 042
     Dates: start: 20090330

REACTIONS (2)
  - SEPSIS [None]
  - SHOCK [None]
